FAERS Safety Report 16500419 (Version 1)
Quarter: 2019Q3

REPORT INFORMATION
  Report Type: Spontaneous
  Country: US (occurrence: US)
  Receive Date: 20190628
  Receipt Date: 20190628
  Transmission Date: 20191004
  Serious: Yes (Other)
  Sender: FDA-Public Use
  Company Number: None

PATIENT
  Age: 35 Year
  Sex: Male

DRUGS (1)
  1. ZILACTIN-B [Suspect]
     Active Substance: BENZOCAINE
     Indication: APHTHOUS ULCER
     Dosage: ?          QUANTITY:1 DROP(S);?
     Dates: start: 20190627, end: 20190627

REACTIONS (5)
  - Application site pain [None]
  - Application site erythema [None]
  - Application site oedema [None]
  - Aphthous ulcer [None]
  - Mouth ulceration [None]

NARRATIVE: CASE EVENT DATE: 20190627
